FAERS Safety Report 4546614-X (Version None)
Quarter: 2005Q1

REPORT INFORMATION
  Report Type: 
  Country: None (occurrence: None)
  Receive Date: 20050103
  Receipt Date: 20041210
  Transmission Date: 20050727
  Serious: Yes (Death)
  Sender: FDA-Public Use
  Company Number: JP_041205374

PATIENT
  Age: 64 Year
  Sex: Female

DRUGS (8)
  1. EVISTA [Suspect]
     Indication: OSTEOPOROSIS
     Dosage: 60 MG/1 DAY
     Dates: start: 20040809, end: 20040101
  2. AMLODIPINE BESYLATE [Concomitant]
  3. MUCOSOLVAN (AMBROXOL HYDROCHLORIDE) [Concomitant]
  4. CHINESE MEDICINE [Concomitant]
  5. HOKUNALIN (TULOBUTEROL HYDROCHLORIDE) [Concomitant]
  6. TERSIGAN (OXITROPIUM BROMIDE) [Concomitant]
  7. ENCERON (IFENPRODIL TARTRATE) [Concomitant]
  8. BUFFERIN [Concomitant]

REACTIONS (1)
  - CEREBRAL INFARCTION [None]
